FAERS Safety Report 17052937 (Version 1)
Quarter: 2019Q4

REPORT INFORMATION
  Report Type: Spontaneous
  Country: US (occurrence: US)
  Receive Date: 20191120
  Receipt Date: 20191120
  Transmission Date: 20200122
  Serious: Yes (Other)
  Sender: FDA-Public Use
  Company Number: None

PATIENT
  Age: 41 Year
  Sex: Female
  Weight: 58.5 kg

DRUGS (4)
  1. IBUPROFEN. [Concomitant]
     Active Substance: IBUPROFEN
  2. NAPROXEN. [Concomitant]
     Active Substance: NAPROXEN
  3. SUBOXONE [Suspect]
     Active Substance: BUPRENORPHINE HYDROCHLORIDE\NALOXONE HYDROCHLORIDE
     Indication: PAIN
     Dosage: ?          QUANTITY:1 SUBLINGUAL FILM;?
     Route: 060
     Dates: start: 20191101, end: 20191114
  4. SUBOXONE [Suspect]
     Active Substance: BUPRENORPHINE HYDROCHLORIDE\NALOXONE HYDROCHLORIDE
     Indication: DRUG DEPENDENCE
     Dosage: ?          QUANTITY:1 SUBLINGUAL FILM;?
     Route: 060
     Dates: start: 20191101, end: 20191114

REACTIONS (3)
  - Oral pain [None]
  - Glossodynia [None]
  - Product quality issue [None]

NARRATIVE: CASE EVENT DATE: 20191101
